FAERS Safety Report 14585837 (Version 1)
Quarter: 2018Q1

REPORT INFORMATION
  Report Type: Spontaneous
  Country: US (occurrence: US)
  Receive Date: 20180228
  Receipt Date: 20180228
  Transmission Date: 20180509
  Serious: Yes (Hospitalization)
  Sender: FDA-Public Use
  Company Number: None

PATIENT
  Age: 59 Year
  Sex: Female
  Weight: 42 kg

DRUGS (2)
  1. CARBOPLATIN. [Suspect]
     Active Substance: CARBOPLATIN
     Dates: end: 20160711
  2. TAXOL [Suspect]
     Active Substance: PACLITAXEL
     Dates: end: 20160719

REACTIONS (6)
  - Asthenia [None]
  - Nausea [None]
  - Mucosal inflammation [None]
  - Dysphagia [None]
  - Presyncope [None]
  - Oesophageal pain [None]

NARRATIVE: CASE EVENT DATE: 20160723
